FAERS Safety Report 5371387-0 (Version None)
Quarter: 2007Q2

REPORT INFORMATION
  Report Type: 
  Country: None (occurrence: None)
  Receive Date: 20070615
  Receipt Date: 20060823
  Transmission Date: 20071010
  Serious: Yes (Other)
  Sender: FDA-Public Use
  Company Number: 200614343US

PATIENT
  Age: 51 Year
  Sex: Male
  Weight: 82 kg

DRUGS (4)
  1. LANTUS [Suspect]
     Indication: DIABETES MELLITUS INSULIN-DEPENDENT
     Dosage: 48 U HS
     Dates: start: 20040101
  2. INSULIN (HUMALOG /00030501/) [Concomitant]
  3. SYNTHROID [Concomitant]
  4. ANTIHPERTENSIVE [Concomitant]

REACTIONS (1)
  - BLOOD GLUCOSE INCREASED [None]
